FAERS Safety Report 18998014 (Version 1)
Quarter: 2021Q1

REPORT INFORMATION
  Report Type: Spontaneous
  Country: US (occurrence: US)
  Receive Date: 20210311
  Receipt Date: 20210311
  Transmission Date: 20210420
  Serious: Yes (Life-Threatening, Hospitalization)
  Sender: FDA-Public Use
  Company Number: US-MYLANLABS-2021M1014800

PATIENT
  Age: 55 Year
  Sex: Female

DRUGS (3)
  1. METHIMAZOLE. [Concomitant]
     Active Substance: METHIMAZOLE
     Indication: BASEDOW^S DISEASE
     Dosage: UNK
     Route: 065
  2. PROPRANOLOL [Suspect]
     Active Substance: PROPRANOLOL HYDROCHLORIDE
     Indication: BASEDOW^S DISEASE
     Dosage: 80 MILLIGRAM, Q6H
     Route: 065
  3. DEXAMETHASONE. [Concomitant]
     Active Substance: DEXAMETHASONE
     Indication: BASEDOW^S DISEASE
     Dosage: HIGH DOSE
     Route: 065

REACTIONS (14)
  - Ventricular dysfunction [Recovered/Resolved]
  - Hyperkalaemia [Unknown]
  - Ventricular fibrillation [Recovered/Resolved]
  - Pulse absent [Recovered/Resolved]
  - Cardiac arrest [Recovered/Resolved]
  - Metabolic acidosis [Unknown]
  - Hypokinesia [Unknown]
  - Unresponsive to stimuli [Recovered/Resolved]
  - Overdose [Recovered/Resolved]
  - Bradyarrhythmia [Recovered/Resolved]
  - Renal injury [Unknown]
  - Off label use [Unknown]
  - Toxicity to various agents [Recovered/Resolved]
  - Hepatocellular injury [Unknown]
